FAERS Safety Report 21572835 (Version 5)
Quarter: 2023Q4

REPORT INFORMATION
  Report Type: Spontaneous
  Country: US (occurrence: US)
  Receive Date: 20221109
  Receipt Date: 20231025
  Transmission Date: 20240110
  Serious: Yes (Hospitalization, Other)
  Sender: FDA-Public Use
  Company Number: US-PFIZER INC-PV202200099577

PATIENT
  Age: 71 Year
  Sex: Female

DRUGS (2)
  1. INLYTA [Suspect]
     Active Substance: AXITINIB
     Indication: Neoplasm malignant
     Dosage: MONDAY-FRIDAY 5 MG MORNING AND EVENING
  2. KEYTRUDA [Concomitant]
     Active Substance: PEMBROLIZUMAB
     Indication: Neoplasm malignant
     Dosage: UNK

REACTIONS (14)
  - Diarrhoea [Not Recovered/Not Resolved]
  - Hypothyroidism [Unknown]
  - Hypertension [Not Recovered/Not Resolved]
  - Night sweats [Not Recovered/Not Resolved]
  - Abdominal distension [Not Recovered/Not Resolved]
  - Fatigue [Recovering/Resolving]
  - Brain fog [Not Recovered/Not Resolved]
  - Cough [Not Recovered/Not Resolved]
  - Pruritus [Unknown]
  - Muscular weakness [Unknown]
  - Back pain [Unknown]
  - Nasal congestion [Unknown]
  - Epistaxis [Unknown]
  - Fall [Unknown]

NARRATIVE: CASE EVENT DATE: 20220101
